FAERS Safety Report 7690692-6 (Version None)
Quarter: 2011Q3

REPORT INFORMATION
  Report Type: 
  Country: None (occurrence: None)
  Receive Date: 20110818
  Receipt Date: 20110804
  Transmission Date: 20111222
  Serious: Yes (Other)
  Sender: FDA-Public Use
  Company Number: US-BAYER-2011-073299

PATIENT
  Age: 2 Year
  Sex: Male

DRUGS (2)
  1. HEPARIN [Concomitant]
     Indication: INFUSION
  2. KOGENATE FS [Suspect]

REACTIONS (1)
  - FACTOR VIII INHIBITION [None]
